FAERS Safety Report 10559446 (Version 1)
Quarter: 2014Q4

REPORT INFORMATION
  Report Type: Spontaneous
  Country: None (occurrence: None)
  Receive Date: 20141031
  Receipt Date: 20141031
  Transmission Date: 20150529
  Serious: Yes (Death, Hospitalization)
  Sender: FDA-Public Use
  Company Number: None

PATIENT
  Age: 72 Year
  Sex: Male
  Weight: 114.8 kg

DRUGS (2)
  1. DAUNORUBICIN [Suspect]
     Active Substance: DAUNORUBICIN
     Dates: start: 20141004
  2. CYTARABINE. [Suspect]
     Active Substance: CYTARABINE
     Dates: start: 20141007

REACTIONS (8)
  - Capillary leak syndrome [None]
  - Pulmonary oedema [None]
  - Hepatic failure [None]
  - Shock [None]
  - Metabolic acidosis [None]
  - Respiratory failure [None]
  - Pleural effusion [None]
  - Acute kidney injury [None]

NARRATIVE: CASE EVENT DATE: 20141024
